FAERS Safety Report 8839885 (Version 2)
Quarter: 2013Q1

REPORT INFORMATION
  Report Type: Spontaneous
  Country: IT (occurrence: IT)
  Receive Date: 20121015
  Receipt Date: 20130212
  Transmission Date: 20140127
  Serious: Yes (Hospitalization, Other)
  Sender: FDA-Public Use
  Company Number: IT-BRISTOL-MYERS SQUIBB COMPANY-17019340

PATIENT
  Age: 84 Year
  Sex: Male
  Weight: 78 kg

DRUGS (2)
  1. ORENCIA FOR INJ 250 MG/VIAL [Suspect]
     Indication: RHEUMATOID ARTHRITIS
     Route: 042
     Dates: start: 20111102, end: 20120319
  2. MEDROL [Suspect]
     Indication: RHEUMATOID ARTHRITIS
     Dosage: 1 DOSE;TAB
     Route: 048

REACTIONS (3)
  - Spinal compression fracture [Recovered/Resolved]
  - Fall [Unknown]
  - Influenza [Recovered/Resolved]
